FAERS Safety Report 6418358-0 (Version None)
Quarter: 2009Q4

REPORT INFORMATION
  Report Type: 
  Country: None (occurrence: None)
  Receive Date: 20091026
  Receipt Date: 20090817
  Transmission Date: 20100525
  Serious: No
  Sender: FDA-Public Use
  Company Number: US-000756

PATIENT
  Sex: Male
  Weight: 73.4827 kg

DRUGS (6)
  1. DEGARELIX 240 MG [Suspect]
     Indication: PROSTATE CANCER
     Dosage: (SUBCUTANEOUS)
     Route: 058
     Dates: start: 20090805, end: 20090805
  2. HYDROCODONE [Concomitant]
  3. OXYCONTIN [Concomitant]
  4. PROCRIT /00909301/ [Concomitant]
  5. NAVELAINE /00988501/ [Concomitant]
  6. CARBOPLATIN [Concomitant]

REACTIONS (4)
  - HEADACHE [None]
  - INJECTION SITE REACTION [None]
  - INJECTION SITE SWELLING [None]
  - VISION BLURRED [None]
